FAERS Safety Report 5860586-7 (Version None)
Quarter: 2008Q3

REPORT INFORMATION
  Report Type: 
  Country: None (occurrence: None)
  Receive Date: 20080827
  Receipt Date: 20071030
  Transmission Date: 20090109
  Serious: No
  Sender: FDA-Public Use
  Company Number: US-ABBOTT-07P-163-0422898-00

PATIENT
  Age: 55 Year
  Sex: Female

DRUGS (2)
  1. COATED PDS [Suspect]
     Indication: HYPERLIPIDAEMIA
     Dosage: QHS
     Route: 048
     Dates: start: 20070801
  2. COATED PDS [Suspect]
     Dosage: UNCOATED QHS
     Dates: start: 20070501, end: 20070801

REACTIONS (2)
  - ERYTHEMA [None]
  - RASH [None]
